FAERS Safety Report 9142640 (Version 2)
Quarter: 2013Q1

REPORT INFORMATION
  Report Type: Spontaneous
  Country: CR (occurrence: CR)
  Receive Date: 20130306
  Receipt Date: 20130313
  Transmission Date: 20140127
  Serious: Yes (Hospitalization)
  Sender: FDA-Public Use
  Company Number: PHHY2013CR021686

PATIENT
  Sex: 0

DRUGS (2)
  1. VOLTAREN [Suspect]
     Indication: BACK PAIN
     Dosage: 75 MG, ONCE/SINGLE (1 DF PER DAY)
     Route: 030
  2. DEXAMETHASONE [Concomitant]
     Indication: BACK PAIN
     Dosage: UNK UKN, UNK
     Route: 030

REACTIONS (2)
  - Septic shock [Recovering/Resolving]
  - Necrotising fasciitis [Recovering/Resolving]
